FAERS Safety Report 7400695-4 (Version None)
Quarter: 2011Q2

REPORT INFORMATION
  Report Type: 
  Country: None (occurrence: None)
  Receive Date: 20110407
  Receipt Date: 20101119
  Transmission Date: 20111010
  Serious: Yes (Hospitalization)
  Sender: FDA-Public Use
  Company Number: A0897015A

PATIENT
  Age: 57 Year
  Sex: Male

DRUGS (1)
  1. AVANDIA [Suspect]
     Dosage: 4MG PER DAY
     Route: 048
     Dates: start: 20030613, end: 20040130

REACTIONS (3)
  - ARTERIOSCLEROSIS [None]
  - CORONARY ARTERY BYPASS [None]
  - CARDIOVASCULAR DISORDER [None]
